FAERS Safety Report 5521865-6 (Version None)
Quarter: 2007Q4

REPORT INFORMATION
  Report Type: 
  Country: None (occurrence: None)
  Receive Date: 20071120
  Receipt Date: 20071109
  Transmission Date: 20080405
  Serious: Yes (Other)
  Sender: FDA-Public Use
  Company Number: PHBS2007US18889

PATIENT
  Age: 13 Year
  Sex: Male

DRUGS (3)
  1. CYCLOSPORINE [Suspect]
     Indication: BONE MARROW TRANSPLANT
     Route: 065
  2. NIFEDIPINE [Concomitant]
  3. OMEPRAZOLE [Concomitant]

REACTIONS (2)
  - POLYP [None]
  - POLYPECTOMY [None]
